FAERS Safety Report 9340775 (Version 1)
Quarter: 2013Q2

REPORT INFORMATION
  Report Type: Spontaneous
  Country: IN (occurrence: IN)
  Receive Date: 20130610
  Receipt Date: 20130610
  Transmission Date: 20140414
  Serious: Yes (Death)
  Sender: FDA-Public Use
  Company Number: IN-JHP PHARMACEUTICALS, LLC-JHP201300334

PATIENT
  Sex: 0

DRUGS (1)
  1. COLY-MYCIN M PARENTERAL [Suspect]
     Indication: BACTERIAL INFECTION
     Dosage: 50,000-75,000 IU/KG/D, IN 3 INDIVIDUAL DOSES OVER 30 MINUTES IN 10 ML NS
     Route: 042

REACTIONS (1)
  - Renal impairment [Fatal]
